FAERS Safety Report 4664761-9 (Version None)
Quarter: 2005Q2

REPORT INFORMATION
  Report Type: 
  Country: None (occurrence: None)
  Receive Date: 20050517
  Receipt Date: 20050517
  Transmission Date: 20051028
  Serious: Yes (Other)
  Sender: FDA-Public Use
  Company Number: None

PATIENT
  Sex: Female
  Weight: 77.5651 kg

DRUGS (2)
  1. FENTANYL [Suspect]
     Indication: COMPLEX REGIONAL PAIN SYNDROME
     Dosage: Q3D PATCH
     Dates: start: 20050409
  2. FENTANYL [Suspect]
     Indication: FIBROMYALGIA
     Dosage: Q3D PATCH
     Dates: start: 20050409

REACTIONS (6)
  - DIZZINESS [None]
  - DYSGEUSIA [None]
  - MIOSIS [None]
  - NAUSEA [None]
  - PHARMACEUTICAL PRODUCT COMPLAINT [None]
  - VISION BLURRED [None]
